FAERS Safety Report 5390470-7 (Version None)
Quarter: 2007Q3

REPORT INFORMATION
  Report Type: 
  Country: None (occurrence: None)
  Receive Date: 20070718
  Receipt Date: 20061102
  Transmission Date: 20080115
  Serious: No
  Sender: FDA-Public Use
  Company Number: US-KINGPHARMUSA00001-K200601396

PATIENT

DRUGS (1)
  1. LEVOXYL [Suspect]
     Dosage: 50 MCG, UNK
     Dates: start: 20020101

REACTIONS (2)
  - ALOPECIA [None]
  - FINGER HYPOPLASIA [None]
